FAERS Safety Report 7872962-1 (Version None)
Quarter: 2011Q4

REPORT INFORMATION
  Report Type: 
  Country: None (occurrence: None)
  Receive Date: 20111027
  Receipt Date: 20111018
  Transmission Date: 20120403
  Serious: Yes (Hospitalization)
  Sender: FDA-Public Use
  Company Number: CLOF-1000348

PATIENT
  Age: 63 Year
  Sex: Female

DRUGS (2)
  1. DAUNORUBICIN HCL [Suspect]
     Indication: ACUTE MYELOID LEUKAEMIA
  2. EVOLTRA (CLOFARABINE) SOLUTION FOR INFUSION [Suspect]
     Indication: ACUTE MYELOID LEUKAEMIA

REACTIONS (5)
  - BLOOD BILIRUBIN INCREASED [None]
  - BLOOD ALKALINE PHOSPHATASE INCREASED [None]
  - EPSTEIN-BARR VIRUS TEST POSITIVE [None]
  - CYTOMEGALOVIRUS TEST POSITIVE [None]
  - ALANINE AMINOTRANSFERASE INCREASED [None]
